FAERS Safety Report 5942066-3 (Version None)
Quarter: 2008Q4

REPORT INFORMATION
  Report Type: 
  Country: None (occurrence: None)
  Receive Date: 20081105
  Receipt Date: 20081031
  Transmission Date: 20090506
  Serious: Yes (Other)
  Sender: FDA-Public Use
  Company Number: A0754691A

PATIENT
  Sex: Male
  Weight: 75.3 kg

DRUGS (9)
  1. ADVAIR DISKUS 100/50 [Suspect]
     Indication: DRUG USE FOR UNKNOWN INDICATION
     Route: 065
  2. ALBUTEROL [Suspect]
     Indication: DRUG USE FOR UNKNOWN INDICATION
  3. PULMICORT-100 [Suspect]
  4. IPRATROPIUM BROMIDE [Suspect]
  5. POTASSIUM CHLORIDE [Concomitant]
  6. LASIX [Concomitant]
  7. XANAX [Concomitant]
  8. SPIRIVA [Concomitant]
  9. ARFORMOTEROL [Concomitant]

REACTIONS (2)
  - FATIGUE [None]
  - TERMINAL STATE [None]
